FAERS Safety Report 24328028 (Version 9)
Quarter: 2025Q3

REPORT INFORMATION
  Report Type: Report from Study
  Country: JP (occurrence: JP)
  Receive Date: 20240917
  Receipt Date: 20250829
  Transmission Date: 20251020
  Serious: Yes (Death, Other)
  Sender: ALEXION PHARMACEUTICALS
  Company Number: JP-AstraZeneca-CH-00698921A

PATIENT
  Age: 80 Year
  Sex: Female
  Weight: 43 kg

DRUGS (12)
  1. DANICOPAN [Suspect]
     Active Substance: DANICOPAN
     Indication: Paroxysmal nocturnal haemoglobinuria
     Dosage: 150 MILLIGRAM, TID
     Dates: start: 20240620, end: 20240828
  2. DANICOPAN [Suspect]
     Active Substance: DANICOPAN
     Dosage: 300 MILLIGRAM, QD
     Dates: start: 20240912, end: 20241006
  3. DANICOPAN [Suspect]
     Active Substance: DANICOPAN
     Dosage: 150 MILLIGRAM, QD
     Dates: start: 20241007, end: 20241107
  4. DANICOPAN [Suspect]
     Active Substance: DANICOPAN
     Dosage: 200 MILLIGRAM, QD
     Dates: start: 20241108, end: 20241125
  5. DANICOPAN [Suspect]
     Active Substance: DANICOPAN
     Dosage: 250 MILLIGRAM, QD
     Dates: start: 20241126, end: 20241209
  6. ULTOMIRIS [Suspect]
     Active Substance: RAVULIZUMAB-CWVZ
     Indication: Paroxysmal nocturnal haemoglobinuria
     Dosage: 2400 MILLIGRAM, Q8W
     Dates: start: 20200306, end: 20240815
  7. EDOXABAN TOSYLATE [Concomitant]
     Active Substance: EDOXABAN TOSYLATE
     Dates: start: 20240815, end: 20241019
  8. CALCITRIOL [Concomitant]
     Active Substance: CALCITRIOL
     Dates: start: 20240815, end: 20241019
  9. PIASKY [Concomitant]
     Active Substance: CROVALIMAB-AKKZ
     Indication: Paroxysmal nocturnal haemoglobinuria
     Dates: start: 20241007, end: 20241007
  10. PIASKY [Concomitant]
     Active Substance: CROVALIMAB-AKKZ
     Dates: start: 20241008, end: 20241008
  11. PIASKY [Concomitant]
     Active Substance: CROVALIMAB-AKKZ
     Dosage: 340 MILLIGRAM, QW
     Dates: start: 20241015, end: 20241028
  12. PIASKY [Concomitant]
     Active Substance: CROVALIMAB-AKKZ
     Dosage: 680 MILLIGRAM, QMONTH
     Dates: start: 20241105, end: 20241105

REACTIONS (2)
  - Interstitial lung disease [Fatal]
  - Hepatic function abnormal [Recovering/Resolving]

NARRATIVE: CASE EVENT DATE: 20240829
